FAERS Safety Report 11833649 (Version 6)
Quarter: 2016Q1

REPORT INFORMATION
  Report Type: Spontaneous
  Country: US (occurrence: US)
  Receive Date: 20151214
  Receipt Date: 20160318
  Transmission Date: 20160525
  Serious: Yes (Other)
  Sender: FDA-Public Use
  Company Number: US-ENDO PHARMACEUTICALS INC.-2015-004847

PATIENT
  Age: 6 Year
  Sex: Female
  Weight: 30.9 kg

DRUGS (1)
  1. SUPPRELIN LA [Suspect]
     Active Substance: HISTRELIN ACETATE
     Indication: PRECOCIOUS PUBERTY
     Dosage: 1 IMPLANT
     Route: 065
     Dates: start: 20150917, end: 20160209

REACTIONS (5)
  - Drug effect decreased [Unknown]
  - Incorrect drug administration duration [Unknown]
  - Device leakage [Unknown]
  - Product quality issue [Unknown]
  - Hypersensitivity [Recovering/Resolving]

NARRATIVE: CASE EVENT DATE: 20150920
